FAERS Safety Report 18547803 (Version 1)
Quarter: 2020Q4

REPORT INFORMATION
  Report Type: Spontaneous
  Country: US (occurrence: US)
  Receive Date: 20201126
  Receipt Date: 20201126
  Transmission Date: 20210114
  Serious: No
  Sender: FDA-Public Use
  Company Number: US-SA-2020SA328277

PATIENT

DRUGS (1)
  1. MULTAQ [Suspect]
     Active Substance: DRONEDARONE
     Indication: ATRIAL FIBRILLATION
     Dosage: 400 MG, BID
     Dates: start: 20200101

REACTIONS (5)
  - Feeling abnormal [Unknown]
  - Dizziness [Unknown]
  - Impaired quality of life [Unknown]
  - Blood pressure increased [Unknown]
  - Fear of falling [Unknown]

NARRATIVE: CASE EVENT DATE: 20200101
